FAERS Safety Report 11077748 (Version 2)
Quarter: 2015Q2

REPORT INFORMATION
  Report Type: Spontaneous
  Country: JP (occurrence: JP)
  Receive Date: 20150430
  Receipt Date: 20150514
  Transmission Date: 20150821
  Serious: Yes (Life-Threatening)
  Sender: FDA-Public Use
  Company Number: JP-ROCHE-718572

PATIENT
  Age: 65 Year
  Sex: Male

DRUGS (21)
  1. VENA [Concomitant]
     Active Substance: DIPHENHYDRAMINE HYDROCHLORIDE
     Indication: PROPHYLAXIS
     Dosage: 3 TABLET, SINGLE
     Route: 048
  2. DOXORUBICIN [Concomitant]
     Active Substance: DOXORUBICIN
     Dosage: 80 MG, SINGLE
     Route: 065
     Dates: start: 20100412
  3. PREDNISOLONE. [Concomitant]
     Active Substance: PREDNISOLONE
     Dosage: 100 MG, SINGLE
     Route: 065
     Dates: start: 20100412
  4. CYCLOPHOSPHAMIDE. [Concomitant]
     Active Substance: CYCLOPHOSPHAMIDE
     Indication: LYMPHOMA
     Dosage: 1200 MG, SINGLE
     Route: 065
     Dates: start: 20100323
  5. DOXORUBICIN [Concomitant]
     Active Substance: DOXORUBICIN
     Dosage: 80 MG, SINGLE
     Route: 065
     Dates: start: 20100510
  6. PREDNISOLONE. [Concomitant]
     Active Substance: PREDNISOLONE
     Indication: LYMPHOMA
     Dosage: 100 MG, SINGLE
     Route: 065
     Dates: start: 20100323
  7. CYCLOPHOSPHAMIDE. [Concomitant]
     Active Substance: CYCLOPHOSPHAMIDE
     Dosage: 1200 MG, SINGLE
     Route: 065
     Dates: start: 20100412
  8. VINCRISTINE [Concomitant]
     Active Substance: VINCRISTINE
     Dosage: 2 MG, SINGLE
     Route: 065
     Dates: start: 20100607
  9. MABTHERA [Suspect]
     Active Substance: RITUXIMAB
     Dosage: 600 MG, UNK
     Route: 042
  10. LOXOPROFEN SODIUM [Concomitant]
     Active Substance: LOXOPROFEN SODIUM
     Indication: PROPHYLAXIS
     Dosage: 1 TABLET, SINGLE
     Route: 048
  11. DOXORUBICIN [Concomitant]
     Active Substance: DOXORUBICIN
     Indication: LYMPHOMA
     Dosage: 80 MG, SINGLE
     Route: 065
     Dates: start: 20100323
  12. VINCRISTINE [Concomitant]
     Active Substance: VINCRISTINE
     Indication: LYMPHOMA
     Dosage: 2 MG, SINGLE
     Route: 065
     Dates: start: 20100323
  13. MABTHERA [Suspect]
     Active Substance: RITUXIMAB
     Dosage: 600 MG, UNK
     Route: 042
  14. PREDNISOLONE. [Concomitant]
     Active Substance: PREDNISOLONE
     Dosage: 100 MG, SINGLE
     Route: 065
     Dates: start: 20100510
  15. PREDNISOLONE. [Concomitant]
     Active Substance: PREDNISOLONE
     Dosage: 100 MG, SINGLE
     Route: 065
     Dates: start: 20100607
  16. MABTHERA [Suspect]
     Active Substance: RITUXIMAB
     Indication: LYMPHOMA
     Dosage: 600 MG, UNK
     Route: 042
  17. CYCLOPHOSPHAMIDE. [Concomitant]
     Active Substance: CYCLOPHOSPHAMIDE
     Dosage: 1200 MG, SINGLE
     Route: 065
     Dates: start: 20100607
  18. CYCLOPHOSPHAMIDE. [Concomitant]
     Active Substance: CYCLOPHOSPHAMIDE
     Dosage: 1200 MG, SINGLE
     Route: 065
     Dates: start: 20100510
  19. VINCRISTINE [Concomitant]
     Active Substance: VINCRISTINE
     Dosage: 2 MG, SINGLE
     Route: 065
     Dates: start: 20100412
  20. MABTHERA [Suspect]
     Active Substance: RITUXIMAB
     Dosage: 600 MG, UNK
     Route: 042
  21. VINCRISTINE [Concomitant]
     Active Substance: VINCRISTINE
     Dosage: 2 MG, SINGLE
     Route: 065
     Dates: start: 20100510

REACTIONS (1)
  - Progressive multifocal leukoencephalopathy [Not Recovered/Not Resolved]

NARRATIVE: CASE EVENT DATE: 201005
